FAERS Safety Report 4322676-X (Version None)
Quarter: 2004Q1

REPORT INFORMATION
  Report Type: 
  Country: None (occurrence: None)
  Receive Date: 20040319
  Receipt Date: 20030327
  Transmission Date: 20041129
  Serious: Yes (Life-Threatening, Hospitalization)
  Sender: FDA-Public Use
  Company Number: 200308634

PATIENT
  Age: 5 Year
  Sex: Male
  Weight: 19.0511 kg

DRUGS (2)
  1. STIMATE [Suspect]
     Indication: VON WILLEBRAND'S DISEASE
     Dosage: 150 UG ONCE IN
     Dates: start: 20021022, end: 20021022
  2. TRILEPTAL [Suspect]
     Dosage: 150 UG ONCE INC
     Dates: start: 20030318, end: 20030318

REACTIONS (3)
  - FLUID OVERLOAD [None]
  - GRAND MAL CONVULSION [None]
  - LETHARGY [None]
